FAERS Safety Report 15837214 (Version 1)
Quarter: 2019Q1

REPORT INFORMATION
  Report Type: Spontaneous
  Country: US (occurrence: US)
  Receive Date: 20190115
  Receipt Date: 20190115
  Transmission Date: 20190417
  Serious: No
  Sender: FDA-Public Use
  Company Number: None

PATIENT

DRUGS (2)
  1. ABIRATERONE 250MG TAB [Suspect]
     Active Substance: ABIRATERONE
     Route: 048
     Dates: start: 20181220
  2. FIRMAGON [Concomitant]
     Active Substance: DEGARELIX ACETATE

REACTIONS (2)
  - Hot flush [None]
  - Dizziness [None]

NARRATIVE: CASE EVENT DATE: 20190109
